FAERS Safety Report 24279537 (Version 1)
Quarter: 2024Q3

REPORT INFORMATION
  Report Type: Spontaneous
  Country: US (occurrence: US)
  Receive Date: 20240904
  Receipt Date: 20240904
  Transmission Date: 20241017
  Serious: No
  Sender: ELI LILLY AND CO
  Company Number: US-ELI_LILLY_AND_COMPANY-US202408017300

PATIENT
  Age: 25 Year
  Sex: Female

DRUGS (1)
  1. EMGALITY [Suspect]
     Active Substance: GALCANEZUMAB-GNLM
     Indication: Product used for unknown indication
     Dosage: UNK UNK, UNKNOWN
     Route: 065
     Dates: start: 202407

REACTIONS (7)
  - Incorrect dose administered [Unknown]
  - Nervousness [Unknown]
  - Malaise [Unknown]
  - Anxiety [Unknown]
  - Streptococcal infection [Unknown]
  - Cough [Unknown]
  - Pulmonary congestion [Unknown]
